FAERS Safety Report 6711381-8 (Version None)
Quarter: 2010Q2

REPORT INFORMATION
  Report Type: 
  Country: None (occurrence: None)
  Receive Date: 20100505
  Receipt Date: 20100429
  Transmission Date: 20101027
  Serious: Yes (Other)
  Sender: FDA-Public Use
  Company Number: US-BAYER-201014856BCC

PATIENT
  Age: 79 Year
  Sex: Male

DRUGS (2)
  1. ASPIRIN [Suspect]
     Indication: TRANSIENT ISCHAEMIC ATTACK
     Route: 065
     Dates: end: 20100101
  2. CRESTOR [Concomitant]
     Route: 065

REACTIONS (3)
  - HYPOAESTHESIA FACIAL [None]
  - ORAL DISCOMFORT [None]
  - TRANSIENT ISCHAEMIC ATTACK [None]
